FAERS Safety Report 21770304 (Version 1)
Quarter: 2022Q4

REPORT INFORMATION
  Report Type: Spontaneous
  Country: CA (occurrence: CA)
  Receive Date: 20221223
  Receipt Date: 20221223
  Transmission Date: 20230113
  Serious: Yes (Hospitalization)
  Sender: FDA-Public Use
  Company Number: CA-GLAXOSMITHKLINE-CA2017GSK153327

PATIENT
  Age: 61 Year
  Sex: Female

DRUGS (3)
  1. ZENHALE [Suspect]
     Active Substance: FORMOTEROL FUMARATE\MOMETASONE FUROATE
     Indication: Product used for unknown indication
     Dosage: 4 PUFF(S), PRN
     Route: 065
  2. VENTOLIN [Suspect]
     Active Substance: ALBUTEROL SULFATE
     Indication: Asthma
     Dosage: UNK UNK, PRN
     Route: 065
  3. GLYCOPYRROLATE [Suspect]
     Active Substance: GLYCOPYRROLATE
     Indication: Product used for unknown indication
     Dosage: UNK
     Route: 065

REACTIONS (12)
  - Productive cough [Unknown]
  - Full blood count abnormal [Unknown]
  - Bronchitis [Unknown]
  - Chest discomfort [Unknown]
  - Nodule [Unknown]
  - Respiratory disorder [Unknown]
  - Sneezing [Unknown]
  - Stress [Unknown]
  - Pulmonary mass [Unknown]
  - Dyspnoea [Unknown]
  - Cough [Unknown]
  - Respiratory symptom [Unknown]
